FAERS Safety Report 7621751-1 (Version None)
Quarter: 2011Q3

REPORT INFORMATION
  Report Type: 
  Country: None (occurrence: None)
  Receive Date: 20110719
  Receipt Date: 20110708
  Transmission Date: 20111222
  Serious: Yes (Hospitalization)
  Sender: FDA-Public Use
  Company Number: US-ASTRAZENECA-2010SE19676

PATIENT
  Age: 24 Year
  Sex: Female

DRUGS (48)
  1. ALBUTEROL SULFATE AUTOHALER [Concomitant]
     Indication: WHEEZING
     Dosage: 90MCG/ INH, 4 TIMES A DAY AS NEEDED
     Route: 055
  2. MESTINON [Concomitant]
     Route: 048
  3. SYMBICORT [Suspect]
     Dosage: 80 MCG/4.5 MCG, TWICE A DAY
     Route: 055
     Dates: start: 20090312
  4. NEXIUM [Suspect]
     Route: 048
     Dates: start: 20090312
  5. ACTONEL [Concomitant]
     Route: 048
  6. EFFEXOR XR [Concomitant]
     Route: 048
     Dates: start: 20090312
  7. PHENAZOPYRIDINE HCL TAB [Concomitant]
     Indication: URINARY TRACT DISORDER
     Route: 048
  8. PHENAZOPYRIDINE HCL TAB [Concomitant]
     Route: 048
  9. SYNTHROID [Concomitant]
     Route: 048
  10. ZOFRAN [Concomitant]
     Indication: NAUSEA
     Route: 048
     Dates: start: 20090312
  11. ZOFRAN [Concomitant]
     Indication: VOMITING
     Route: 048
     Dates: start: 20090312
  12. BENADRYL [Concomitant]
     Route: 048
     Dates: start: 20090312
  13. METFORMIN HCL [Suspect]
     Indication: DIABETES MELLITUS
     Route: 048
     Dates: start: 20090312
  14. ELMIRON [Concomitant]
     Route: 048
     Dates: start: 20090312
  15. FOLIC ACID [Concomitant]
     Route: 048
     Dates: start: 20090312
  16. HYDROCHLOROTHIAZIDE [Concomitant]
     Route: 048
     Dates: start: 20090312
  17. NOVOLOG [Concomitant]
     Indication: DIABETES MELLITUS
     Dosage: ACCORDING TO BLOOD SUGAR
     Route: 058
  18. TAGAMET [Concomitant]
     Indication: GASTROOESOPHAGEAL REFLUX DISEASE
     Route: 048
  19. TOPAMAX [Concomitant]
     Route: 048
  20. ZOFRAN [Concomitant]
     Route: 048
  21. IPRATROPIUM BROMIDE [Concomitant]
     Indication: WHEEZING
     Dosage: 18 MCG/ INH AS NEEDED
     Route: 055
  22. KCL 20 [Concomitant]
  23. METHYLPHENIDATE [Concomitant]
     Route: 048
  24. PREDNISONE [Concomitant]
     Route: 048
     Dates: start: 20090312
  25. DILTIAZEM [Concomitant]
     Route: 048
     Dates: start: 20090312
  26. GEMFIBROZIL [Concomitant]
     Route: 048
  27. MELATONIN [Concomitant]
     Route: 048
  28. MESTINON [Concomitant]
     Route: 048
  29. YASMIN [Concomitant]
     Route: 048
  30. LORATADINE [Concomitant]
     Route: 048
  31. XOPENEX HFA [Concomitant]
     Dates: start: 20090312
  32. VANCOMYCIN [Concomitant]
     Route: 048
     Dates: start: 20090313
  33. AMBIEN [Concomitant]
     Route: 048
     Dates: start: 20090312
  34. LANTUS [Concomitant]
     Indication: DIABETES MELLITUS
     Dosage: 15 UNITS EVERY MORNING
     Route: 058
  35. LIDODERM [Concomitant]
     Indication: ARTHRALGIA
     Dosage: 1 PATCH DAILY AS NEEDED
     Route: 061
  36. DROSPIRENONE AND ETHINYL ESTRADIOL [Concomitant]
     Route: 048
  37. TAGAMET [Concomitant]
     Route: 048
  38. YASMIN [Concomitant]
     Route: 048
  39. ACIPHEX [Concomitant]
     Route: 048
  40. LANSOPRAZOLE [Concomitant]
     Route: 048
  41. ZOFRAN [Concomitant]
     Route: 048
  42. SEROQUEL [Suspect]
     Route: 048
     Dates: start: 20090312
  43. CYANOCOBALAMIN [Concomitant]
     Route: 048
  44. IMURAN [Concomitant]
  45. IMURAN [Concomitant]
  46. PREDNISONE [Concomitant]
     Route: 048
  47. SUBOXONE [Concomitant]
     Dosage: 8MG-2MG DISINTEGRATING THREE TIMES A DAY
     Route: 060
     Dates: start: 20090312
  48. VITAMIN D [Concomitant]
     Route: 048
     Dates: start: 20090313

REACTIONS (6)
  - DIABETES MELLITUS [None]
  - MALAISE [None]
  - DRUG DOSE OMISSION [None]
  - LACTIC ACIDOSIS [None]
  - MOUTH ULCERATION [None]
  - GASTROOESOPHAGEAL REFLUX DISEASE [None]
